FAERS Safety Report 21693402 (Version 1)
Quarter: 2022Q4

REPORT INFORMATION
  Report Type: Spontaneous
  Country: JP (occurrence: JP)
  Receive Date: 20221207
  Receipt Date: 20221207
  Transmission Date: 20230113
  Serious: Yes (Hospitalization)
  Sender: FDA-Public Use
  Company Number: JP-Atnahs Limited-ATNAHS20221212715

PATIENT
  Age: 78 Year
  Sex: Female

DRUGS (1)
  1. BONVIVA [Suspect]
     Active Substance: IBANDRONATE SODIUM
     Indication: Arthritis
     Dosage: 1 MG
     Route: 042
     Dates: end: 20221124

REACTIONS (2)
  - Foot fracture [Unknown]
  - Off label use [Unknown]
